FAERS Safety Report 10586099 (Version 1)
Quarter: 2014Q4

REPORT INFORMATION
  Report Type: Spontaneous
  Country: DE (occurrence: DE)
  Receive Date: 20141115
  Receipt Date: 20141115
  Transmission Date: 20150529
  Serious: Yes (Disabling)
  Sender: FDA-Public Use
  Company Number: DE-ASTRAZENECA-2014SE85301

PATIENT
  Age: 45 Year
  Sex: Male

DRUGS (1)
  1. SEROQUEL [Suspect]
     Active Substance: QUETIAPINE FUMARATE
     Route: 048
     Dates: start: 20140405

REACTIONS (4)
  - Parkinsonism [Recovered/Resolved with Sequelae]
  - Insomnia [Unknown]
  - Anhidrosis [Unknown]
  - Neurodegenerative disorder [Recovered/Resolved with Sequelae]

NARRATIVE: CASE EVENT DATE: 20140512
